FAERS Safety Report 7335890-6 (Version None)
Quarter: 2011Q1

REPORT INFORMATION
  Report Type: 
  Country: None (occurrence: None)
  Receive Date: 20110307
  Receipt Date: 20110303
  Transmission Date: 20110831
  Serious: Yes (Life-Threatening, Hospitalization, Other)
  Sender: FDA-Public Use
  Company Number: DE-ASTRAZENECA-2011SE11993

PATIENT
  Sex: Female

DRUGS (1)
  1. SEROQUEL [Suspect]
     Dosage: 12 G ONCE
     Route: 048

REACTIONS (5)
  - SUICIDE ATTEMPT [None]
  - BRAIN OEDEMA [None]
  - ENDOTRACHEAL INTUBATION [None]
  - EYE MOVEMENT DISORDER [None]
  - OVERDOSE [None]
